FAERS Safety Report 4620580-0 (Version None)
Quarter: 2005Q1

REPORT INFORMATION
  Report Type: 
  Country: None (occurrence: None)
  Receive Date: 20050324
  Receipt Date: 20050310
  Transmission Date: 20050727
  Serious: Yes (Hospitalization, Other)
  Sender: FDA-Public Use
  Company Number: ZICO001196

PATIENT
  Age: 46 Year
  Sex: Female

DRUGS (1)
  1. PRIALT [Suspect]
     Dosage: NO INF INTRATHECAL
     Route: 037
     Dates: start: 20050308, end: 20050309

REACTIONS (5)
  - CHEST PAIN [None]
  - DYSPNOEA [None]
  - FLANK PAIN [None]
  - HYPOAESTHESIA [None]
  - MUSCLE SPASMS [None]
